FAERS Safety Report 4353877-2 (Version None)
Quarter: 2004Q2

REPORT INFORMATION
  Report Type: 
  Country: None (occurrence: None)
  Receive Date: 20040430
  Receipt Date: 20040419
  Transmission Date: 20050107
  Serious: Yes (Life-Threatening, Hospitalization)
  Sender: FDA-Public Use
  Company Number: 2003116842

PATIENT
  Age: 49 Year
  Sex: Male
  Weight: 50 kg

DRUGS (7)
  1. FLUCONAZOLE [Suspect]
     Indication: MENINGITIS CRYPTOCOCCAL
     Dosage: 800 MG (BID), INTRAVENOUS
     Route: 042
     Dates: start: 20030922
  2. STAVUDINE (STAVUDINE) [Concomitant]
  3. LAMIVUDINE (LAMIVUDINE) [Concomitant]
  4. KALETRA [Concomitant]
  5. FLUCYTOSINE (FLUCYTOSINE) [Concomitant]
  6. ISONIAZID [Concomitant]
  7. LEVOFLOXACIN [Concomitant]

REACTIONS (6)
  - APHASIA [None]
  - CONJUNCTIVAL DISORDER [None]
  - CONJUNCTIVAL HYPERAEMIA [None]
  - MENTAL IMPAIRMENT [None]
  - NERVOUS SYSTEM DISORDER [None]
  - SKIN REACTION [None]
